FAERS Safety Report 13998867 (Version 1)
Quarter: 2017Q3

REPORT INFORMATION
  Report Type: Spontaneous
  Country: US (occurrence: None)
  Receive Date: 20170922
  Receipt Date: 20170922
  Transmission Date: 20171128
  Serious: Yes (Hospitalization)
  Sender: FDA-Public Use
  Company Number: None

PATIENT
  Age: 74 Year
  Sex: Male
  Weight: 76.66 kg

DRUGS (2)
  1. ASPIRIN. [Suspect]
     Active Substance: ASPIRIN
     Indication: CORONARY ARTERY DISEASE
     Route: 048
     Dates: start: 20170212
  2. APIXABAN [Suspect]
     Active Substance: APIXABAN
     Indication: ATRIAL FIBRILLATION
     Route: 048
     Dates: start: 20170503, end: 20170523

REACTIONS (8)
  - Subarachnoid haemorrhage [None]
  - Gastrointestinal arteriovenous malformation [None]
  - Diverticulum [None]
  - Fall [None]
  - Haemorrhoids [None]
  - Anaemia [None]
  - Gastritis [None]
  - Gastric haemorrhage [None]

NARRATIVE: CASE EVENT DATE: 20170517
